FAERS Safety Report 26209506 (Version 1)
Quarter: 2025Q4

REPORT INFORMATION
  Report Type: Spontaneous
  Country: KR (occurrence: KR)
  Receive Date: 20251229
  Receipt Date: 20251229
  Transmission Date: 20260117
  Serious: Yes (Other)
  Sender: MYLAN
  Company Number: KR-MYLANLABS-2025M1110362

PATIENT
  Sex: Female

DRUGS (4)
  1. CELEBREX [Suspect]
     Active Substance: CELECOXIB
     Indication: Drug hypersensitivity
     Dosage: 100 MILLIGRAM, QD
     Dates: start: 20240518, end: 20240518
  2. CELEBREX [Suspect]
     Active Substance: CELECOXIB
     Dosage: 100 MILLIGRAM, QD
     Route: 065
     Dates: start: 20240518, end: 20240518
  3. CELEBREX [Suspect]
     Active Substance: CELECOXIB
     Dosage: 100 MILLIGRAM, QD
     Route: 065
     Dates: start: 20240518, end: 20240518
  4. CELEBREX [Suspect]
     Active Substance: CELECOXIB
     Dosage: 100 MILLIGRAM, QD
     Dates: start: 20240518, end: 20240518

REACTIONS (7)
  - Laryngeal oedema [Recovered/Resolved]
  - Chest discomfort [Recovered/Resolved]
  - Pyrexia [Recovered/Resolved]
  - Pruritus [Recovered/Resolved]
  - Urticaria [Recovered/Resolved]
  - Face oedema [Recovered/Resolved]
  - Product use in unapproved indication [Unknown]

NARRATIVE: CASE EVENT DATE: 20240518
